FAERS Safety Report 5256174-6 (Version None)
Quarter: 2007Q1

REPORT INFORMATION
  Report Type: 
  Country: None (occurrence: None)
  Receive Date: 20070306
  Receipt Date: 20070226
  Transmission Date: 20070707
  Serious: Yes (Other)
  Sender: FDA-Public Use
  Company Number: PHEH2007US02408

PATIENT
  Age: 66 Year
  Sex: Female

DRUGS (6)
  1. ZELNORM [Suspect]
     Indication: REFLUX OESOPHAGITIS
     Dates: start: 20070224, end: 20070225
  2. ACIPHEX [Concomitant]
     Indication: REFLUX OESOPHAGITIS
  3. NEURONTIN [Concomitant]
     Indication: REFLUX OESOPHAGITIS
  4. PANCREATIC ENZYMES [Concomitant]
     Indication: REFLUX OESOPHAGITIS
  5. ACTONEL [Concomitant]
  6. ATIVAN [Concomitant]

REACTIONS (4)
  - ABDOMINAL PAIN [None]
  - DIARRHOEA [None]
  - PAIN IN EXTREMITY [None]
  - RECTAL HAEMORRHAGE [None]
